FAERS Safety Report 25071767 (Version 1)
Quarter: 2025Q1

REPORT INFORMATION
  Report Type: Spontaneous
  Country: US (occurrence: US)
  Receive Date: 20250313
  Receipt Date: 20250313
  Transmission Date: 20250409
  Serious: No
  Sender: ROCHE
  Company Number: US-ROCHE-10000227819

PATIENT
  Age: 44 Year
  Sex: Female
  Weight: 97.52 kg

DRUGS (4)
  1. OCREVUS [Suspect]
     Active Substance: OCRELIZUMAB
     Indication: Multiple sclerosis
     Route: 042
     Dates: start: 20241102
  2. ACETAMINOPHEN [Concomitant]
     Active Substance: ACETAMINOPHEN
     Route: 048
  3. DIPHENHYDRAMINE [Concomitant]
     Active Substance: DIPHENHYDRAMINE
     Route: 048
  4. Solu-medrol (Methylprednisolone) [Concomitant]
     Route: 042

REACTIONS (7)
  - Nasopharyngitis [Unknown]
  - Back pain [Unknown]
  - Muscular weakness [Unknown]
  - Arthralgia [Unknown]
  - Paraesthesia [Unknown]
  - Neck pain [Unknown]
  - Bone pain [Unknown]

NARRATIVE: CASE EVENT DATE: 20250222
